FAERS Safety Report 10075657 (Version 1)
Quarter: 2014Q2

REPORT INFORMATION
  Report Type: Spontaneous
  Country: IT (occurrence: IT)
  Receive Date: 20140414
  Receipt Date: 20140414
  Transmission Date: 20141212
  Serious: Yes (Hospitalization)
  Sender: FDA-Public Use
  Company Number: IT-JNJFOC-20140406356

PATIENT
  Age: 54 Year
  Sex: Female

DRUGS (1)
  1. KOLIBRI 37.5 MG + 325 MG COMPRESSE RIVESTITE CON FILM [Suspect]
     Indication: PAIN IN EXTREMITY
     Route: 048
     Dates: start: 20131130, end: 20131130

REACTIONS (2)
  - Hypotension [Recovering/Resolving]
  - Bradycardia [Recovering/Resolving]
